FAERS Safety Report 6857202-4 (Version None)
Quarter: 2010Q3

REPORT INFORMATION
  Report Type: 
  Country: None (occurrence: None)
  Receive Date: 20100719
  Receipt Date: 20100709
  Transmission Date: 20110219
  Serious: Yes (Other)
  Sender: FDA-Public Use
  Company Number: US-PFIZER INC-2010086718

PATIENT
  Sex: Male
  Weight: 79 kg

DRUGS (3)
  1. CADUET [Suspect]
     Indication: BLOOD CHOLESTEROL INCREASED
     Dosage: 10/10 MG, DAILY
     Route: 048
     Dates: start: 20090101, end: 20100101
  2. CADUET [Suspect]
     Indication: HYPERTENSION
  3. LIPITOR [Suspect]
     Indication: BLOOD CHOLESTEROL INCREASED
     Dosage: 10 MG, DAILY
     Route: 048
     Dates: start: 20100601

REACTIONS (3)
  - HYPERTENSION [None]
  - MYALGIA [None]
  - PAIN IN EXTREMITY [None]
